FAERS Safety Report 8144867-2 (Version None)
Quarter: 2012Q1

REPORT INFORMATION
  Report Type: 
  Country: None (occurrence: None)
  Receive Date: 20120217
  Receipt Date: 20120213
  Transmission Date: 20120608
  Serious: Yes (Hospitalization)
  Sender: FDA-Public Use
  Company Number: US-GLAXOSMITHKLINE-A0966104A

PATIENT
  Age: 78 Year
  Sex: Female

DRUGS (7)
  1. TYKERB [Suspect]
     Dosage: 1000MG AT NIGHT
     Route: 048
  2. ISOSORBIDE MONONITRATE [Concomitant]
  3. CRESTOR [Concomitant]
  4. TOPROL-XL [Concomitant]
  5. ACETAMINOPHEN [Concomitant]
  6. BENICAR [Concomitant]
  7. ASPIRIN [Concomitant]

REACTIONS (9)
  - RED BLOOD CELL COUNT DECREASED [None]
  - ABDOMINAL PAIN UPPER [None]
  - NAUSEA [None]
  - MALAISE [None]
  - BALANCE DISORDER [None]
  - APHAGIA [None]
  - WHITE BLOOD CELL COUNT DECREASED [None]
  - ABASIA [None]
  - DIZZINESS [None]
